FAERS Safety Report 13751345 (Version 1)
Quarter: 2017Q3

REPORT INFORMATION
  Report Type: Spontaneous
  Country: FR (occurrence: FR)
  Receive Date: 20170713
  Receipt Date: 20170713
  Transmission Date: 20171127
  Serious: Yes (Death, Other)
  Sender: FDA-Public Use
  Company Number: FR-AMGEN-FRASP2017102431

PATIENT
  Age: 69 Year
  Sex: Male
  Weight: 69 kg

DRUGS (6)
  1. SOLUPRED [Concomitant]
     Active Substance: PREDNISOLONE
     Indication: PAIN
     Dosage: 20 MG, QD
  2. OXYCONTIN [Concomitant]
     Active Substance: OXYCODONE HYDROCHLORIDE
     Indication: PAIN
     Dosage: 20 MG, QD
     Dates: start: 20140212
  3. XGEVA [Suspect]
     Active Substance: DENOSUMAB
     Indication: METASTASES TO BONE
     Dosage: UNK
     Route: 058
     Dates: start: 20140410, end: 20150122
  4. XATRAL [Concomitant]
     Active Substance: ALFUZOSIN
     Indication: BENIGN PROSTATIC HYPERPLASIA
     Dosage: 10 MG, QD
     Dates: start: 20140423
  5. SUTENT [Suspect]
     Active Substance: SUNITINIB MALATE
     Indication: METASTATIC RENAL CELL CARCINOMA
     Dosage: 37.5 TO 50 MG, CYCLICAL
     Route: 048
     Dates: start: 20140327, end: 20150129
  6. OXYNORM [Concomitant]
     Active Substance: OXYCODONE HYDROCHLORIDE
     Indication: PAIN
     Dosage: 5 MG, QD
     Dates: start: 20140212

REACTIONS (3)
  - Death [Fatal]
  - Anaemia [Recovered/Resolved with Sequelae]
  - Oral infection [Recovering/Resolving]

NARRATIVE: CASE EVENT DATE: 20150311
